FAERS Safety Report 7835409-7 (Version None)
Quarter: 2011Q4

REPORT INFORMATION
  Report Type: 
  Country: None (occurrence: None)
  Receive Date: 20111024
  Receipt Date: 20111018
  Transmission Date: 20120403
  Serious: Yes (Hospitalization)
  Sender: FDA-Public Use
  Company Number: US-ABBOTT-11P-163-0866426-00

PATIENT
  Sex: Male

DRUGS (2)
  1. DEPAKOTE [Suspect]
     Indication: CONVULSION
  2. DEPAKOTE [Suspect]
     Indication: SCHIZOPHRENIA
     Dates: end: 20110101

REACTIONS (1)
  - PLATELET COUNT DECREASED [None]
